FAERS Safety Report 25462822 (Version 1)
Quarter: 2025Q2

REPORT INFORMATION
  Report Type: Spontaneous
  Country: CN (occurrence: CN)
  Receive Date: 20250620
  Receipt Date: 20250620
  Transmission Date: 20250717
  Serious: Yes (Death)
  Sender: JOHNSON AND JOHNSON
  Company Number: CN-BAYER-2025A081561

PATIENT
  Age: 78 Year
  Sex: Female

DRUGS (3)
  1. RIVAROXABAN [Suspect]
     Active Substance: RIVAROXABAN
     Indication: Superficial vein thrombosis
     Dosage: 10 MG, QD
  2. UNSPECIFIED INGREDIENT [Suspect]
     Active Substance: UNSPECIFIED INGREDIENT
     Indication: Anticoagulant therapy
     Route: 058
  3. ALTEPLASE [Suspect]
     Active Substance: ALTEPLASE
     Indication: Thrombolysis
     Route: 040

REACTIONS (9)
  - Catheter site haemorrhage [Fatal]
  - Puncture site haemorrhage [Fatal]
  - Shock haemorrhagic [Fatal]
  - Disseminated intravascular coagulation [Fatal]
  - Labelled drug-drug interaction issue [Fatal]
  - Product prescribing issue [Unknown]
  - Product use in unapproved indication [Unknown]
  - Contraindicated product prescribed [Unknown]
  - Contraindicated product administered [Unknown]
